FAERS Safety Report 14207004 (Version 1)
Quarter: 2017Q4

REPORT INFORMATION
  Report Type: Spontaneous
  Country: ES (occurrence: ES)
  Receive Date: 20171121
  Receipt Date: 20171121
  Transmission Date: 20180321
  Serious: Yes (Hospitalization, Other)
  Sender: FDA-Public Use
  Company Number: ES-LUPIN PHARMACEUTICALS INC.-2017-06633

PATIENT
  Age: 68 Year
  Sex: Female
  Weight: 78 kg

DRUGS (4)
  1. ESCITALOPRAM [Suspect]
     Active Substance: ESCITALOPRAM OXALATE
     Indication: ANXIETY
     Dosage: 5 MG, QD (AT BREAKFAST, FOR SEVERAL YEARS)
     Route: 048
     Dates: end: 2015
  2. SIMVASTATINA CINFA [Concomitant]
     Indication: HYPERCHOLESTEROLAEMIA
     Dosage: 20 MG, QD (AT DINNER)
     Route: 048
  3. HIBOR [Concomitant]
     Active Substance: BEMIPARIN SODIUM
     Indication: THROMBOSIS PROPHYLAXIS
     Dosage: 3500 IU ANTI-XA/0.2 ML SOLUTION FOR INJECTION IN PRE-FILLED SYRINGE; IN THE EVENING
     Route: 058
     Dates: start: 2015, end: 2015
  4. EMCONCOR [Concomitant]
     Active Substance: BISOPROLOL FUMARATE
     Indication: HYPERTENSION
     Dosage: 1.25 MG, BID (AT BREAKFAST AND DINNER, EVERY 12 HOURS)
     Route: 048

REACTIONS (4)
  - Food interaction [Unknown]
  - Haemodynamic instability [Unknown]
  - Drug interaction [Unknown]
  - Haemorrhage [Recovered/Resolved]

NARRATIVE: CASE EVENT DATE: 2015
